FAERS Safety Report 9504515 (Version 1)
Quarter: 2013Q3

REPORT INFORMATION
  Report Type: Spontaneous
  Country: IT (occurrence: IT)
  Receive Date: 20130906
  Receipt Date: 20130906
  Transmission Date: 20140515
  Serious: Yes (Other)
  Sender: FDA-Public Use
  Company Number: IT-ABBOTT-13P-083-1142180-00

PATIENT
  Age: 34 Year
  Sex: Male

DRUGS (13)
  1. CYCLOSPORINE [Suspect]
     Indication: PROPHYLAXIS AGAINST GRAFT VERSUS HOST DISEASE
     Dosage: 2 MG/KG DAILY STARTING AT DAY 1 AFTER HSCT
  2. CYCLOSPORINE [Suspect]
     Dosage: 2 MG/KG DAILY AT START OF ECP
  3. CYCLOSPORINE [Suspect]
     Dosage: 2 MG/KG DAILY AFTER 30 DAYS OF ECP
  4. CYCLOSPORINE [Suspect]
     Dosage: 2 MG/KG DAILY AFTER 60 DAYS OF ECP
  5. METHYLPREDNISOLONE [Suspect]
     Indication: PROPHYLAXIS AGAINST GRAFT VERSUS HOST DISEASE
     Dosage: 2 MG/KG DAILY FOR SEVEN DAYS
  6. METHYLPREDNISOLONE [Suspect]
     Dosage: 2 MG/KG DAILY AT START OF ECP
  7. METHYLPREDNISOLONE [Suspect]
     Dosage: 2 MG/KG DAILY AFTER 30 DAYS OF ECP
  8. METHYLPREDNISOLONE [Suspect]
     Dosage: 1 MG/KG DAILY AFTER 60 DAYS OF ECP
  9. METHYLPREDNISOLONE [Suspect]
     Dosage: 0.5 MG/KG DAILY AFTER 90 DAYS OF ECP
  10. MYCOPHENOLATE MOFETIL [Suspect]
     Indication: PROPHYLAXIS AGAINST GRAFT VERSUS HOST DISEASE
     Dosage: 1 GM TWICE DAILY AT START OF ECP
  11. MYCOPHENOLATE MOFETIL [Suspect]
     Dosage: 1 GM TWICE DAILY AFTER 30 DAYS ECP
  12. FLUDARABINE [Concomitant]
     Indication: PRODUCT USED FOR UNKNOWN INDICATION
  13. MELPHALAN [Concomitant]
     Indication: PRODUCT USED FOR UNKNOWN INDICATION

REACTIONS (2)
  - Renal failure acute [Unknown]
  - Graft versus host disease [Recovered/Resolved]
